FAERS Safety Report 17310632 (Version 4)
Quarter: 2020Q2

REPORT INFORMATION
  Report Type: Report from Study
  Country: PL (occurrence: PL)
  Receive Date: 20200123
  Receipt Date: 20200527
  Transmission Date: 20200713
  Serious: Yes (Hospitalization)
  Sender: FDA-Public Use
  Company Number: PL-EXELIXIS-XL18420026766

PATIENT
  Age: 58 Year
  Sex: Male
  Weight: 96 kg

DRUGS (12)
  1. XL184 [Suspect]
     Active Substance: CABOZANTINIB
     Indication: HEPATOCELLULAR CARCINOMA
     Dosage: 40 MG, QD
     Route: 048
     Dates: start: 20191219, end: 20200108
  2. XL184 [Suspect]
     Active Substance: CABOZANTINIB
     Dosage: 40 MG, QD
     Route: 048
     Dates: start: 20200124
  3. ATEZOLIZUMAB. [Suspect]
     Active Substance: ATEZOLIZUMAB
     Dosage: 1200 MG, Q3WEEKS
     Route: 048
     Dates: start: 20200124
  4. PANTOPRAZOL [Concomitant]
     Active Substance: PANTOPRAZOLE SODIUM
  5. RANLOSIN [Concomitant]
     Active Substance: TAMSULOSIN HYDROCHLORIDE
  6. ATEZOLIZUMAB. [Suspect]
     Active Substance: ATEZOLIZUMAB
     Indication: HEPATOCELLULAR CARCINOMA
     Dosage: 1200 MG, Q3WEEKS
     Route: 048
     Dates: start: 20191219, end: 20191219
  7. PERINDOPRIL [Concomitant]
     Active Substance: PERINDOPRIL
  8. AMLOPIN [AMLODIPINE MALEATE] [Concomitant]
     Active Substance: AMLODIPINE MALEATE
  9. PYLERA [Concomitant]
     Active Substance: BISMUTH SUBCITRATE POTASSIUM\METRONIDAZOLE\TETRACYCLINE HYDROCHLORIDE
  10. BUSCOLYSIN [Concomitant]
     Active Substance: BUTYLSCOPOLAMINE
  11. GLUCOPHAGE [Concomitant]
     Active Substance: METFORMIN HYDROCHLORIDE
  12. CLARITHROMYCINUM [Concomitant]

REACTIONS (1)
  - Bronchitis [Recovered/Resolved]

NARRATIVE: CASE EVENT DATE: 20191225
